FAERS Safety Report 9602404 (Version 1)
Quarter: 2013Q4

REPORT INFORMATION
  Report Type: Spontaneous
  Country: BE (occurrence: None)
  Receive Date: 20131003
  Receipt Date: 20131003
  Transmission Date: 20140711
  Serious: Yes (Other)
  Sender: FDA-Public Use
  Company Number: 1920295

PATIENT
  Age: 56 Year
  Sex: Female
  Weight: 90 kg

DRUGS (7)
  1. CARBOPLATIN [Suspect]
     Indication: OVARIAN EPITHELIAL CANCER
     Route: 042
     Dates: start: 20130430, end: 20130619
  2. FELODIPINE\METOPROLOL [Concomitant]
  3. ALOXI [Concomitant]
  4. PHENEGAN [Concomitant]
  5. DEXAMETHASONE [Concomitant]
  6. ZANTAC [Concomitant]
  7. PACLITAXEL [Concomitant]

REACTIONS (3)
  - Hot flush [None]
  - Rash [None]
  - Respiratory disorder [None]
